FAERS Safety Report 21241745 (Version 3)
Quarter: 2022Q3

REPORT INFORMATION
  Report Type: Spontaneous
  Country: DE (occurrence: DE)
  Receive Date: 20220823
  Receipt Date: 20220929
  Transmission Date: 20221027
  Serious: Yes (Death, Life-Threatening, Hospitalization, Other)
  Sender: FDA-Public Use
  Company Number: None

PATIENT
  Age: 40 Year
  Sex: Female

DRUGS (33)
  1. MYCOPHENOLATE MOFETIL [Suspect]
     Active Substance: MYCOPHENOLATE MOFETIL
     Indication: Immunosuppressant drug therapy
     Dosage: 2 GRAM, QD (EVERY 1 DAY)
     Route: 065
  2. MYCOPHENOLATE MOFETIL [Suspect]
     Active Substance: MYCOPHENOLATE MOFETIL
     Indication: Prophylaxis against graft versus host disease
     Dosage: UNK; DOSE REDUCED
     Route: 065
  3. MYCOPHENOLATE MOFETIL [Suspect]
     Active Substance: MYCOPHENOLATE MOFETIL
     Indication: Acute myeloid leukaemia
     Dosage: UNK; MYCOPHENOLIC ACID
     Route: 065
  4. MYCOPHENOLATE MOFETIL [Suspect]
     Active Substance: MYCOPHENOLATE MOFETIL
     Indication: Graft versus host disease
  5. AZACITIDINE [Suspect]
     Active Substance: AZACITIDINE
     Indication: Acute myeloid leukaemia
     Dosage: UNK
     Route: 065
  6. AZACITIDINE [Suspect]
     Active Substance: AZACITIDINE
     Indication: Graft versus host disease
  7. CARMUSTINE [Suspect]
     Active Substance: CARMUSTINE
     Indication: Acute myeloid leukaemia
     Dosage: UNK
     Route: 065
  8. CARMUSTINE [Suspect]
     Active Substance: CARMUSTINE
     Indication: Graft versus host disease
  9. CARMUSTINE [Suspect]
     Active Substance: CARMUSTINE
     Indication: Allogenic stem cell transplantation
  10. CYCLOSPORINE [Suspect]
     Active Substance: CYCLOSPORINE
     Indication: Prophylaxis against graft versus host disease
     Dosage: UNK
     Route: 065
  11. CYCLOSPORINE [Suspect]
     Active Substance: CYCLOSPORINE
     Indication: Immunosuppressant drug therapy
  12. CYCLOSPORINE [Suspect]
     Active Substance: CYCLOSPORINE
     Indication: Acute myeloid leukaemia
  13. CYCLOSPORINE [Suspect]
     Active Substance: CYCLOSPORINE
     Indication: Graft versus host disease
  14. FLUDARABINE [Suspect]
     Active Substance: FLUDARABINE PHOSPHATE
     Indication: Acute myeloid leukaemia
     Dosage: UNK
     Route: 065
  15. FLUDARABINE [Suspect]
     Active Substance: FLUDARABINE PHOSPHATE
     Indication: Graft versus host disease
  16. FLUDARABINE [Suspect]
     Active Substance: FLUDARABINE PHOSPHATE
     Indication: Allogenic stem cell transplantation
  17. GILTERITINIB [Suspect]
     Active Substance: GILTERITINIB
     Indication: Acute myeloid leukaemia
     Dosage: UNK
     Route: 065
  18. GILTERITINIB [Suspect]
     Active Substance: GILTERITINIB
     Indication: Graft versus host disease
  19. MELPHALAN [Suspect]
     Active Substance: MELPHALAN
     Indication: Acute myeloid leukaemia
     Dosage: UNK
     Route: 065
  20. MELPHALAN [Suspect]
     Active Substance: MELPHALAN
     Indication: Graft versus host disease
  21. MELPHALAN [Suspect]
     Active Substance: MELPHALAN
     Indication: Allogenic stem cell transplantation
  22. PREDNISOLONE [Suspect]
     Active Substance: PREDNISOLONE
     Indication: Prophylaxis against graft versus host disease
     Dosage: UNK
     Route: 065
  23. PREDNISOLONE [Suspect]
     Active Substance: PREDNISOLONE
     Dosage: UNK; DOSE REDUCED
     Route: 065
  24. SORAFENIB [Suspect]
     Active Substance: SORAFENIB
     Indication: Acute myeloid leukaemia
     Dosage: UNK
     Route: 065
  25. SORAFENIB [Suspect]
     Active Substance: SORAFENIB
     Indication: Graft versus host disease
     Dosage: UNK
     Route: 065
  26. SORAFENIB [Suspect]
     Active Substance: SORAFENIB
     Indication: Acute myeloid leukaemia
  27. THYMOGLOBULINE [Suspect]
     Active Substance: LAPINE T-LYMPHOCYTE IMMUNE GLOBULIN
     Indication: Bone marrow conditioning regimen
     Dosage: 2 TOTAL
     Route: 065
  28. THYMOGLOBULINE [Suspect]
     Active Substance: LAPINE T-LYMPHOCYTE IMMUNE GLOBULIN
     Indication: Acute myeloid leukaemia
     Dosage: UNK
     Route: 065
  29. THYMOGLOBULINE [Suspect]
     Active Substance: LAPINE T-LYMPHOCYTE IMMUNE GLOBULIN
     Indication: Graft versus host disease
     Dosage: UNK
     Route: 065
  30. THYMOGLOBULINE [Suspect]
     Active Substance: LAPINE T-LYMPHOCYTE IMMUNE GLOBULIN
     Indication: Allogenic stem cell transplantation
  31. VENETOCLAX [Suspect]
     Active Substance: VENETOCLAX
     Indication: Acute myeloid leukaemia
     Dosage: UNK
     Route: 065
  32. VENETOCLAX [Suspect]
     Active Substance: VENETOCLAX
     Indication: Graft versus host disease
  33. CD33 monoclonal antibodies [Concomitant]
     Indication: Acute myeloid leukaemia (in remission)
     Dosage: UNK
     Route: 065

REACTIONS (12)
  - Acute kidney injury [Fatal]
  - Adenoviral hepatitis [Fatal]
  - Febrile neutropenia [Fatal]
  - Coagulopathy [Unknown]
  - Adenovirus infection [Fatal]
  - Tachycardia [Fatal]
  - Septic shock [Fatal]
  - Multiple organ dysfunction syndrome [Fatal]
  - Pneumonia adenoviral [Fatal]
  - Respiratory failure [Fatal]
  - Pyrexia [Fatal]
  - Leukopenia [Fatal]
